FAERS Safety Report 10004114 (Version 1)
Quarter: 2014Q1

REPORT INFORMATION
  Report Type: Spontaneous
  Country: US (occurrence: US)
  Receive Date: 20140312
  Receipt Date: 20140312
  Transmission Date: 20141002
  Serious: No
  Sender: FDA-Public Use
  Company Number: US-INCYTE CORPORATION-2014IN000298

PATIENT
  Age: 72 Year
  Sex: Female

DRUGS (6)
  1. JAKAFI [Suspect]
     Indication: POLYCYTHAEMIA VERA
     Dosage: 10 MG, BID
     Route: 048
     Dates: end: 20140121
  2. JAKAFI [Suspect]
     Dosage: 5 MG, BID
     Route: 048
     Dates: start: 20140202
  3. VERAPAMIL [Concomitant]
  4. CITALOPRAM [Concomitant]
  5. GABAPENTIN [Concomitant]
  6. ASPIRIN [Concomitant]
     Dosage: 81 MG

REACTIONS (3)
  - Oral mucosal erythema [Unknown]
  - Oral pain [Unknown]
  - Abdominal tenderness [Unknown]
